FAERS Safety Report 17550084 (Version 1)
Quarter: 2020Q1

REPORT INFORMATION
  Report Type: Spontaneous
  Country: DE (occurrence: DE)
  Receive Date: 20200317
  Receipt Date: 20200317
  Transmission Date: 20200409
  Serious: Yes (Hospitalization, Other)
  Sender: FDA-Public Use
  Company Number: DE-PFIZER INC-2020109497

PATIENT
  Sex: Female
  Weight: 4 kg

DRUGS (1)
  1. MISOPROSTOL. [Suspect]
     Active Substance: MISOPROSTOL
     Indication: LABOUR INDUCTION
     Dosage: 3 DOSES
     Dates: start: 20101126, end: 20101127

REACTIONS (3)
  - Foetal exposure during delivery [Unknown]
  - Amniocentesis abnormal [Unknown]
  - Neonatal respiratory distress [Unknown]
